FAERS Safety Report 16517654 (Version 1)
Quarter: 2019Q3

REPORT INFORMATION
  Report Type: Report from Study
  Country: IT (occurrence: IT)
  Receive Date: 20190702
  Receipt Date: 20190702
  Transmission Date: 20191004
  Serious: Yes (Other)
  Sender: FDA-Public Use
  Company Number: IT-MYLANLABS-2019M1061803

PATIENT
  Age: 51 Year
  Sex: Female

DRUGS (4)
  1. BRUFEN 600 MG GRANULATO EFFERVESCENTE [Suspect]
     Active Substance: IBUPROFEN
     Indication: FIBROMYALGIA
     Dosage: 1 DOSAGE FORM, PRN
     Route: 048
  2. EUTIROX [Concomitant]
     Active Substance: LEVOTHYROXINE SODIUM
     Indication: THYROIDECTOMY
  3. AULIN [Interacting]
     Active Substance: NIMESULIDE
     Indication: FIBROMYALGIA
     Dosage: 1 DOSAGE FORM, PRN
     Route: 048
  4. OKI [Interacting]
     Active Substance: KETOPROFEN LYSINE
     Indication: FIBROMYALGIA
     Dosage: 1 DOSAGE FORM, PRN

REACTIONS (2)
  - Drug interaction [Unknown]
  - Gastric disorder [Recovering/Resolving]

NARRATIVE: CASE EVENT DATE: 20181220
